FAERS Safety Report 5571616-4 (Version None)
Quarter: 2007Q4

REPORT INFORMATION
  Report Type: 
  Country: None (occurrence: None)
  Receive Date: 20071221
  Receipt Date: 20071018
  Transmission Date: 20080405
  Serious: No
  Sender: FDA-Public Use
  Company Number: US-BRISTOL-MYERS SQUIBB COMPANY-13875844

PATIENT
  Age: 74 Year
  Sex: Male
  Weight: 79 kg

DRUGS (5)
  1. SPRYCEL [Suspect]
     Indication: CHRONIC MYELOID LEUKAEMIA
     Dosage: 11AUG07 2TABS SPRYCEL 50MG IN MORNING.
     Route: 048
     Dates: start: 20070725
  2. LIPITOR [Concomitant]
  3. VITAMIN E [Concomitant]
  4. VITAMIN B COMPLEX + C [Concomitant]
  5. SYNTHROID [Concomitant]

REACTIONS (4)
  - CHEST PAIN [None]
  - DYSPNOEA [None]
  - FATIGUE [None]
  - MUSCULOSKELETAL STIFFNESS [None]
